FAERS Safety Report 4495381-7 (Version None)
Quarter: 2004Q4

REPORT INFORMATION
  Report Type: 
  Country: None (occurrence: None)
  Receive Date: 20041108
  Receipt Date: 20041027
  Transmission Date: 20050328
  Serious: Yes (Disabling)
  Sender: FDA-Public Use
  Company Number: DE-BRISTOL-MYERS SQUIBB COMPANY-12748232

PATIENT

DRUGS (3)
  1. METHOTREXATE [Suspect]
     Indication: LYMPHOMA
  2. VEPESID [Suspect]
     Indication: LYMPHOMA
  3. VINCRISTINE [Suspect]
     Indication: LYMPHOMA

REACTIONS (1)
  - BLINDNESS [None]
